FAERS Safety Report 25510165 (Version 1)
Quarter: 2025Q3

REPORT INFORMATION
  Report Type: Spontaneous
  Country: US (occurrence: US)
  Receive Date: 20250703
  Receipt Date: 20250703
  Transmission Date: 20251021
  Serious: No
  Sender: RADIUS PHARM
  Company Number: US-RADIUS HEALTH INC.-2024US003033

PATIENT
  Sex: Female
  Weight: 51.882 kg

DRUGS (1)
  1. TYMLOS [Suspect]
     Active Substance: ABALOPARATIDE
     Indication: Senile osteoporosis
     Route: 058

REACTIONS (7)
  - Nausea [Recovered/Resolved]
  - Headache [Unknown]
  - Chromaturia [Unknown]
  - Abdominal distension [Unknown]
  - Peripheral swelling [Unknown]
  - Gait disturbance [Unknown]
  - Dizziness [Unknown]
